FAERS Safety Report 17858689 (Version 1)
Quarter: 2020Q2

REPORT INFORMATION
  Report Type: Report from Study
  Country: None (occurrence: US)
  Receive Date: 20200604
  Receipt Date: 20200604
  Transmission Date: 20200714
  Serious: No
  Sender: FDA-Public Use
  Company Number: US-US WORLDMEDS, LLC-USW201912-002290

PATIENT
  Age: 83 Year
  Sex: Female
  Weight: 47.62 kg

DRUGS (16)
  1. APOKYN [Suspect]
     Active Substance: APOMORPHINE HYDROCHLORIDE
     Dosage: 3ML CARTRIDGE 1 EA CART
  2. SINEMET [Concomitant]
     Active Substance: CARBIDOPA\LEVODOPA
  3. VIT D [Concomitant]
     Active Substance: VITAMIN D NOS
  4. VITAMIN B12 [Concomitant]
     Active Substance: CYANOCOBALAMIN
  5. TYLENOL ARTHRITIS PAIN [Concomitant]
     Active Substance: ACETAMINOPHEN
     Indication: ARTHRITIS
  6. SERTRALINE [Concomitant]
     Active Substance: SERTRALINE HYDROCHLORIDE
  7. APOKYN [Suspect]
     Active Substance: APOMORPHINE HYDROCHLORIDE
     Dosage: 3ML CARTRIDGE 1 EA CART
  8. GABAPENTIN. [Concomitant]
     Active Substance: GABAPENTIN
  9. SERTRALINE [Concomitant]
     Active Substance: SERTRALINE HYDROCHLORIDE
  10. TRIAMCINOLONE [Concomitant]
     Active Substance: TRIAMCINOLONE
  11. APOKYN [Suspect]
     Active Substance: APOMORPHINE HYDROCHLORIDE
     Dosage: 3ML CARTRIDGE 1 EA CART (TITRATE BY 0.1 ML EVERY FEW DAYS UP TO EFFECTIVE MAXIMUM RECOMMENDED DOSE O
     Route: 058
  12. VITAMIN C [Concomitant]
     Active Substance: ASCORBIC ACID
  13. TRIAMCINOLONE [Concomitant]
     Active Substance: TRIAMCINOLONE
  14. APOKYN [Suspect]
     Active Substance: APOMORPHINE HYDROCHLORIDE
     Indication: PARKINSON^S DISEASE
     Route: 058
     Dates: start: 20191202
  15. CALCIUM [Concomitant]
     Active Substance: CALCIUM
  16. MELATONIN [Concomitant]
     Active Substance: MELATONIN

REACTIONS (9)
  - Nausea [Unknown]
  - Dizziness [Recovering/Resolving]
  - Muscle tightness [Recovering/Resolving]
  - Headache [Recovered/Resolved]
  - Blood pressure systolic increased [Unknown]
  - Muscle spasms [Unknown]
  - Blood pressure systolic decreased [Unknown]
  - Asthenia [Recovered/Resolved]
  - Somnolence [Unknown]

NARRATIVE: CASE EVENT DATE: 20191202
